FAERS Safety Report 20243767 (Version 1)
Quarter: 2021Q4

REPORT INFORMATION
  Report Type: Spontaneous
  Country: US (occurrence: US)
  Receive Date: 20211228
  Receipt Date: 20211228
  Transmission Date: 20220304
  Serious: No
  Sender: FDA-Public Use
  Company Number: US-COOPERSURGICAL, INC.-US-2021CPS002115

PATIENT
  Age: 36 Year
  Sex: Female
  Weight: 83.447 kg

DRUGS (3)
  1. PARAGARD T 380A [Suspect]
     Active Substance: COPPER
     Indication: Contraception
     Dosage: UNK
     Route: 015
     Dates: start: 20210720, end: 20210720
  2. IRON [Concomitant]
     Active Substance: IRON
     Indication: Supplementation therapy
     Route: 065
  3. VITAMIN D                          /00107901/ [Concomitant]
     Indication: Supplementation therapy
     Dosage: 25 MCG, UNK
     Route: 065

REACTIONS (1)
  - Complication of device insertion [Recovered/Resolved]

NARRATIVE: CASE EVENT DATE: 20210720
